FAERS Safety Report 17555855 (Version 3)
Quarter: 2020Q3

REPORT INFORMATION
  Report Type: Spontaneous
  Country: DE (occurrence: DE)
  Receive Date: 20200318
  Receipt Date: 20200717
  Transmission Date: 20201102
  Serious: Yes (Hospitalization, Other)
  Sender: FDA-Public Use
  Company Number: DE-SA-2020SA065836

PATIENT

DRUGS (7)
  1. L THYROXIN [Concomitant]
     Active Substance: LEVOTHYROXINE SODIUM
     Dosage: UNK UNK, QD
  2. IBU [Concomitant]
     Active Substance: IBUPROFEN
     Dosage: UNK UNK, BID
  3. DEKRISTOL [Concomitant]
     Active Substance: CHOLECALCIFEROL
     Dosage: UNK UNK, QW
  4. AUBAGIO [Suspect]
     Active Substance: TERIFLUNOMIDE
     Indication: MULTIPLE SCLEROSIS
     Dosage: UNK
     Route: 048
  5. PANTOZOLE [Concomitant]
     Active Substance: PANTOPRAZOLE SODIUM
     Dosage: UNK UNK, QD
  6. MOVICOL [Concomitant]
     Active Substance: POLYETHYLENE GLYCOL 3350\POTASSIUM CHLORIDE\SODIUM BICARBONATE\SODIUM CHLORIDE
     Dosage: UNK UNK, QD
  7. NOVALGIN (METAMIZOLE SODIUM) [Concomitant]
     Active Substance: METAMIZOLE SODIUM
     Dosage: 30 GTT DROPS, TID
     Route: 050

REACTIONS (9)
  - Acrochordon [Unknown]
  - Pain [Recovering/Resolving]
  - Anal inflammation [Unknown]
  - Scar [Unknown]
  - Anal squamous cell carcinoma [Recovered/Resolved]
  - Fibroma [Unknown]
  - Postoperative wound complication [Unknown]
  - Anal cancer stage 0 [Recovered/Resolved]
  - Anal skin tags [Unknown]

NARRATIVE: CASE EVENT DATE: 202002
